FAERS Safety Report 8046480-4 (Version None)
Quarter: 2012Q1

REPORT INFORMATION
  Report Type: 
  Country: None (occurrence: None)
  Receive Date: 20120113
  Receipt Date: 20120109
  Transmission Date: 20120608
  Serious: Yes (Other)
  Sender: FDA-Public Use
  Company Number: US-ABBOTT-12P-163-0891662-00

PATIENT
  Sex: Male
  Weight: 79.904 kg

DRUGS (2)
  1. TRICOR [Suspect]
     Indication: BLOOD TRIGLYCERIDES INCREASED
     Dates: start: 20060101
  2. VICODIN [Concomitant]
     Indication: PAIN

REACTIONS (2)
  - HEADACHE [None]
  - ROTATOR CUFF SYNDROME [None]
